FAERS Safety Report 4978684-9 (Version None)
Quarter: 2006Q2

REPORT INFORMATION
  Report Type: 
  Country: None (occurrence: None)
  Receive Date: 20060420
  Receipt Date: 20050829
  Transmission Date: 20061013
  Serious: Yes (Hospitalization)
  Sender: FDA-Public Use
  Company Number: US-MERCK-0508USA04897

PATIENT
  Age: 53 Year
  Sex: Male
  Weight: 107 kg

DRUGS (2)
  1. VIOXX [Suspect]
     Indication: JOINT INJURY
     Route: 048
     Dates: start: 19990101, end: 20040101
  2. VIOXX [Suspect]
     Route: 048
     Dates: start: 19990101, end: 20040101

REACTIONS (6)
  - ARTHROPATHY [None]
  - DYSPNOEA [None]
  - OEDEMA PERIPHERAL [None]
  - OVERDOSE [None]
  - PALPITATIONS [None]
  - THROMBOSIS [None]
